FAERS Safety Report 7806849-7 (Version None)
Quarter: 2011Q4

REPORT INFORMATION
  Report Type: 
  Country: None (occurrence: None)
  Receive Date: 20111011
  Receipt Date: 20110929
  Transmission Date: 20120403
  Serious: Yes (Hospitalization)
  Sender: FDA-Public Use
  Company Number: DE-PFIZER INC-2010084438

PATIENT
  Age: 46 Year
  Sex: Female
  Weight: 51 kg

DRUGS (5)
  1. LEVOTHYROXINE SODIUM [Concomitant]
     Indication: HYPOTHYROIDISM
     Dosage: 25 UG, 1X/DAY
     Route: 048
     Dates: start: 20100504
  2. PARACETAMOL [Concomitant]
     Indication: PALMAR-PLANTAR ERYTHRODYSAESTHESIA SYNDROME
     Dosage: 650 MG, AS NEEDED
     Route: 048
     Dates: start: 20100315, end: 20100712
  3. LEVOTHYROXINE SODIUM [Concomitant]
     Dosage: 75 UG, 1X/DAY
     Dates: start: 20100507
  4. SUNITINIB MALATE [Suspect]
     Indication: RENAL CELL CARCINOMA
     Dosage: 50 MG, 1X/DAY, SCHEDULE 4/2
     Route: 048
     Dates: start: 20090709, end: 20100706
  5. EUPHRASIA EXTRACT [Concomitant]
     Indication: EYE IRRITATION
     Dosage: AS NEEDED
     Route: 047
     Dates: start: 20090723, end: 20100712

REACTIONS (1)
  - MYOCARDITIS [None]
